FAERS Safety Report 19912271 (Version 1)
Quarter: 2021Q4

REPORT INFORMATION
  Report Type: Spontaneous
  Country: US (occurrence: US)
  Receive Date: 20211003
  Receipt Date: 20211003
  Transmission Date: 20220303
  Serious: Yes (unspecified)
  Sender: FDA-Public Use
  Company Number: None

PATIENT
  Age: 32 Year
  Sex: Female
  Weight: 81 kg

DRUGS (2)
  1. ELIQUIS [Suspect]
     Active Substance: APIXABAN
     Indication: Pulmonary embolism
     Dosage: QUANTITY:1 TABLET(S);
     Route: 048
     Dates: start: 20210815, end: 20211001
  2. KEPPRA [Concomitant]
     Active Substance: LEVETIRACETAM

REACTIONS (5)
  - Abdominal pain [None]
  - Abdominal distension [None]
  - Heavy menstrual bleeding [None]
  - Fluid retention [None]
  - Hypophagia [None]

NARRATIVE: CASE EVENT DATE: 20210927
